FAERS Safety Report 20513848 (Version 1)
Quarter: 2022Q1

REPORT INFORMATION
  Report Type: Spontaneous
  Country: SK (occurrence: SK)
  Receive Date: 20220224
  Receipt Date: 20220224
  Transmission Date: 20220423
  Serious: Yes (Other)
  Sender: FDA-Public Use
  Company Number: SK-AMGEN-SVKSP2022027063

PATIENT
  Age: 75 Year
  Sex: Female

DRUGS (1)
  1. PROLIA [Suspect]
     Active Substance: DENOSUMAB
     Indication: Product used for unknown indication
     Dosage: UNK
     Route: 065
     Dates: start: 201104

REACTIONS (9)
  - Thoracic vertebral fracture [Unknown]
  - Gastroduodenal ulcer [Unknown]
  - Oesophageal candidiasis [Unknown]
  - Bradycardia [Unknown]
  - Polyneuropathy [Unknown]
  - Atrial fibrillation [Unknown]
  - Hiatus hernia [Unknown]
  - Osteoporosis [Unknown]
  - Gastrooesophageal reflux disease [Unknown]

NARRATIVE: CASE EVENT DATE: 20170101
